FAERS Safety Report 6309840-5 (Version None)
Quarter: 2009Q3

REPORT INFORMATION
  Report Type: 
  Country: None (occurrence: None)
  Receive Date: 20090811
  Receipt Date: 20090702
  Transmission Date: 20100115
  Serious: No
  Sender: FDA-Public Use
  Company Number: 1000007205

PATIENT
  Age: 66 Year
  Sex: Male

DRUGS (18)
  1. SAVELLA [Suspect]
     Indication: FIBROMYALGIA
     Dosage: SEE IMAGE
     Route: 048
     Dates: start: 20090620, end: 20090620
  2. PRAVACHOL [Concomitant]
  3. COZAAR [Concomitant]
  4. LOVASTATIN [Concomitant]
  5. OXYCONTIN [Concomitant]
  6. OXYCONTIN [Concomitant]
  7. NEURONTIN [Concomitant]
  8. NASONEX [Concomitant]
  9. OXYCODONE HCL [Concomitant]
  10. CARDURA [Concomitant]
  11. FLOMAX [Concomitant]
  12. MIRALAX [Concomitant]
  13. VASOTEC [Concomitant]
  14. SULAR [Concomitant]
  15. DYAZIDE [Concomitant]
  16. AMRIX [Concomitant]
  17. CELEBREX [Concomitant]
  18. OSTEO BI-FLEX [Concomitant]

REACTIONS (5)
  - BLOOD PRESSURE INCREASED [None]
  - BURNING SENSATION [None]
  - DRY MOUTH [None]
  - HEART RATE INCREASED [None]
  - TONGUE DISORDER [None]
